FAERS Safety Report 10262418 (Version 1)
Quarter: 2014Q2

REPORT INFORMATION
  Report Type: Spontaneous
  Country: DE (occurrence: DE)
  Receive Date: 20140626
  Receipt Date: 20140626
  Transmission Date: 20141212
  Serious: Yes (Other)
  Sender: FDA-Public Use
  Company Number: GXKR2014DE002343

PATIENT
  Age: 92 Year
  Sex: Male

DRUGS (1)
  1. SALBUHEXAL N [Suspect]
     Dosage: MORE THAN 5X DAILY
     Route: 055

REACTIONS (1)
  - Drug abuse [Unknown]
